FAERS Safety Report 9795772 (Version 2)
Quarter: 2014Q1

REPORT INFORMATION
  Report Type: Spontaneous
  Country: JP (occurrence: JP)
  Receive Date: 20140103
  Receipt Date: 20140130
  Transmission Date: 20141002
  Serious: Yes (Life-Threatening)
  Sender: FDA-Public Use
  Company Number: JP-JNJFOC-20131218093

PATIENT
  Age: 64 Year
  Sex: Female
  Weight: 55.78 kg

DRUGS (4)
  1. XARELTO [Suspect]
     Indication: CEREBROVASCULAR ACCIDENT PROPHYLAXIS
     Route: 048
     Dates: start: 20130328
  2. XARELTO [Suspect]
     Indication: ATRIAL FIBRILLATION
     Route: 048
     Dates: start: 20130328
  3. LANIRAPID [Concomitant]
     Route: 048
     Dates: start: 20130328
  4. LIMAPROST [Concomitant]
     Route: 048
     Dates: start: 20130328

REACTIONS (1)
  - Cerebral artery embolism [Recovering/Resolving]
